FAERS Safety Report 4715642-3 (Version None)
Quarter: 2005Q3

REPORT INFORMATION
  Report Type: 
  Country: None (occurrence: None)
  Receive Date: 20050713
  Receipt Date: 20050629
  Transmission Date: 20060218
  Serious: Yes (Hospitalization)
  Sender: FDA-Public Use
  Company Number: 2005-01163

PATIENT
  Age: 78 Year
  Sex: Female
  Weight: 68 kg

DRUGS (5)
  1. VELCADE [Suspect]
     Indication: MULTIPLE MYELOMA
     Dosage: 2.20 MG, INTRAVENOUS
     Route: 042
     Dates: start: 20050215, end: 20050225
  2. VELCADE [Suspect]
     Indication: MULTIPLE MYELOMA
     Dosage: 2.20 MG, INTRAVENOUS
     Route: 042
     Dates: start: 20050613
  3. GELONIDA (CODEINE PHOSPHATE, PARACETAMOL) [Concomitant]
  4. AEQUAMEN (BETAHISTINE MESILATE) [Concomitant]
  5. MC (METOCLOPRAMIDE HYDROCHLORIDE) [Concomitant]

REACTIONS (10)
  - BLOOD SODIUM DECREASED [None]
  - CIRCULATORY COLLAPSE [None]
  - COLITIS [None]
  - DEHYDRATION [None]
  - GASTROENTERITIS [None]
  - GASTROINTESTINAL TOXICITY [None]
  - HAEMATOCRIT DECREASED [None]
  - HAEMOGLOBIN DECREASED [None]
  - PLATELET COUNT DECREASED [None]
  - RED BLOOD CELL COUNT DECREASED [None]
